FAERS Safety Report 18258203 (Version 1)
Quarter: 2020Q3

REPORT INFORMATION
  Report Type: Report from Study
  Country: CA (occurrence: CA)
  Receive Date: 20200911
  Receipt Date: 20200911
  Transmission Date: 20201103
  Serious: Yes (Hospitalization)
  Sender: FDA-Public Use
  Company Number: CA-JNJFOC-20191236610

PATIENT
  Age: 16 Year
  Sex: Male
  Weight: 61 kg

DRUGS (3)
  1. REMICADE [Suspect]
     Active Substance: INFLIXIMAB
     Dosage: THE PATIENT RECEIVED HIS 5TH 600 MG INFLIXIMAB INFUSION ON 06?APR?2020.
     Route: 042
  2. REMICADE [Suspect]
     Active Substance: INFLIXIMAB
     Route: 042
  3. REMICADE [Suspect]
     Active Substance: INFLIXIMAB
     Indication: CROHN^S DISEASE
     Route: 042
     Dates: start: 20191108

REACTIONS (5)
  - Product use issue [Unknown]
  - Frequent bowel movements [Unknown]
  - Abscess intestinal [Recovering/Resolving]
  - Diarrhoea [Unknown]
  - Off label use [Unknown]

NARRATIVE: CASE EVENT DATE: 20200405
